FAERS Safety Report 6417238-4 (Version None)
Quarter: 2009Q4

REPORT INFORMATION
  Report Type: 
  Country: None (occurrence: None)
  Receive Date: 20091026
  Receipt Date: 20091020
  Transmission Date: 20100525
  Serious: Yes (Life-Threatening)
  Sender: FDA-Public Use
  Company Number: 2009JP006335

PATIENT
  Age: 72 Year
  Sex: Male

DRUGS (10)
  1. VESICARE [Suspect]
     Indication: NOCTURIA
     Dosage: 5 MG, ORAL, 5 MG, ORAL
     Route: 048
     Dates: start: 20090918, end: 20091001
  2. VESICARE [Suspect]
     Indication: NOCTURIA
     Dosage: 5 MG, ORAL, 5 MG, ORAL
     Route: 048
     Dates: start: 20091001, end: 20091001
  3. UROTAILON    (FLAVOXATE HYDROCHLORIDE) [Suspect]
     Dosage: 400 MG, ORAL; 400 MG, ORAL
     Route: 048
     Dates: start: 20090918, end: 20091001
  4. UROTAILON    (FLAVOXATE HYDROCHLORIDE) [Suspect]
     Dosage: 400 MG, ORAL; 400 MG, ORAL
     Route: 048
     Dates: start: 20091001, end: 20091001
  5. BROTIZOLAM          (BROTIZOLAM) [Concomitant]
  6. DEPAS       (ETIZOLAM) [Concomitant]
  7. MYSLEE (ZOLPIDEM) [Concomitant]
  8. RHYTHMY (RILMAZAFONE HYDROCHLORIDE) [Concomitant]
  9. LEVEMIR [Concomitant]
  10. NOVOLOG [Concomitant]

REACTIONS (1)
  - HYPOGLYCAEMIA [None]
